FAERS Safety Report 10479528 (Version 2)
Quarter: 2017Q2

REPORT INFORMATION
  Report Type: Spontaneous
  Country: CA (occurrence: CA)
  Receive Date: 20140927
  Receipt Date: 20170501
  Transmission Date: 20170829
  Serious: Yes (Life-Threatening, Hospitalization, Disabling)
  Sender: FDA-Public Use
  Company Number: CA-MERCK-1409CAN009981

PATIENT
  Age: 94 Year
  Sex: Male
  Weight: 70 kg

DRUGS (11)
  1. HYDROMORPHONE [Concomitant]
     Active Substance: HYDROMORPHONE
     Dosage: 0.5 MG, Q2DAYS
  2. TAMSULOSIN HYDROCHLORIDE. [Concomitant]
     Active Substance: TAMSULOSIN HYDROCHLORIDE
     Dosage: 04 DF, UNK
  3. HUMULIN NOS [Concomitant]
     Active Substance: INSULIN HUMAN
     Dosage: 4 DF, UNK
     Route: 030
  4. LANTUS [Concomitant]
     Active Substance: INSULIN GLARGINE
     Dosage: 32 DF, UNK
     Route: 058
  5. NITROGLYCERIN. [Concomitant]
     Active Substance: NITROGLYCERIN
     Dosage: 0.4 DF, QH
  6. AVODART [Concomitant]
     Active Substance: DUTASTERIDE
     Dosage: 0.5 DF, UNK
     Route: 065
  7. INVANZ [Suspect]
     Active Substance: ERTAPENEM SODIUM
     Indication: OSTEOMYELITIS
     Dosage: 1 G,1 EVERY 24 HOURS
     Route: 042
     Dates: end: 20140203
  8. CARVEDILOL. [Concomitant]
     Active Substance: CARVEDILOL
     Dosage: 6.25 DF, UNK
     Route: 065
  9. FUROSEMIDE. [Concomitant]
     Active Substance: FUROSEMIDE
     Dosage: 60 DF, UNK
     Route: 048
  10. ACETAMINOPHEN. [Concomitant]
     Active Substance: ACETAMINOPHEN
     Dosage: 1 G, UNK
     Route: 048
  11. EFFEXOR XR [Concomitant]
     Active Substance: VENLAFAXINE HYDROCHLORIDE
     Dosage: 37.5 DF, UNK
     Route: 048

REACTIONS (5)
  - Confusional state [Recovered/Resolved]
  - Neurotoxicity [Recovered/Resolved]
  - Myoclonus [Recovered/Resolved]
  - Asthenia [Recovered/Resolved]
  - Dysarthria [Recovered/Resolved]

NARRATIVE: CASE EVENT DATE: 20140131
